FAERS Safety Report 13304605 (Version 2)
Quarter: 2017Q1

REPORT INFORMATION
  Report Type: Spontaneous
  Country: US (occurrence: US)
  Receive Date: 20170308
  Receipt Date: 20170309
  Transmission Date: 20170428
  Serious: Yes (Death, Hospitalization)
  Sender: FDA-Public Use
  Company Number: US-CIPLA LTD.-2017US02518

PATIENT

DRUGS (9)
  1. METHYLPREDNISOLONE. [Suspect]
     Active Substance: METHYLPREDNISOLONE
     Indication: BRAIN OEDEMA
     Dosage: UNK
     Route: 065
  2. TRIMETHOPRIM/SULFAMETHOXAZOLE [Suspect]
     Active Substance: SULFAMETHOXAZOLE\TRIMETHOPRIM
     Indication: NOCARDIOSIS
     Dosage: UNK
     Route: 065
  3. LINEZOLID. [Suspect]
     Active Substance: LINEZOLID
     Indication: NOCARDIOSIS
     Dosage: UNK
     Route: 065
  4. LEVOFLOXACIN. [Suspect]
     Active Substance: LEVOFLOXACIN
     Indication: NOCARDIOSIS
     Dosage: UNK
     Route: 065
  5. MEROPENEM. [Suspect]
     Active Substance: MEROPENEM
     Indication: NOCARDIOSIS
     Dosage: UNK
     Route: 065
  6. METHOTREXATE. [Suspect]
     Active Substance: METHOTREXATE
     Indication: EVIDENCE BASED TREATMENT
     Dosage: UNK, HIGH-DOSE
     Route: 042
  7. MINOCYCLINE [Suspect]
     Active Substance: MINOCYCLINE\MINOCYCLINE HYDROCHLORIDE
     Indication: NOCARDIOSIS
     Dosage: UNK
     Route: 065
  8. CIPROFLOXACIN. [Suspect]
     Active Substance: CIPROFLOXACIN
     Indication: NOCARDIOSIS
     Dosage: UNK
     Route: 065
  9. CEFTRIAXONE. [Suspect]
     Active Substance: CEFTRIAXONE
     Indication: NOCARDIOSIS
     Dosage: UNK
     Route: 065

REACTIONS (4)
  - Death [Fatal]
  - Brain abscess [Unknown]
  - Pancytopenia [Unknown]
  - Nocardiosis [Unknown]
